FAERS Safety Report 5537716-X (Version None)
Quarter: 2007Q4

REPORT INFORMATION
  Report Type: 
  Country: None (occurrence: None)
  Receive Date: 20071207
  Receipt Date: 20071126
  Transmission Date: 20080405
  Serious: Yes (Other)
  Sender: FDA-Public Use
  Company Number: ES-JNJFOC-20071108843

PATIENT
  Age: 70 Year
  Sex: Male

DRUGS (3)
  1. LEVOFLOXACIN [Suspect]
     Indication: PNEUMONIA
     Route: 065
  2. CORTICOSTEROIDS [Concomitant]
     Route: 065
  3. BRONCHODILATORS [Concomitant]
     Route: 065

REACTIONS (2)
  - MOTOR DYSFUNCTION [None]
  - TENDONITIS [None]
